FAERS Safety Report 8259144-9 (Version None)
Quarter: 2012Q2

REPORT INFORMATION
  Report Type: 
  Country: None (occurrence: None)
  Receive Date: 20120404
  Receipt Date: 20120326
  Transmission Date: 20120825
  Serious: Yes (Other)
  Sender: FDA-Public Use
  Company Number: US-JNJFOC-20120313758

PATIENT
  Age: 66 Year
  Sex: Female

DRUGS (2)
  1. XARELTO [Suspect]
     Indication: ATRIAL FIBRILLATION
     Route: 048
     Dates: start: 20120120
  2. AGGRENOX [Concomitant]
     Dates: start: 20120101, end: 20120101

REACTIONS (2)
  - RAYNAUD'S PHENOMENON [None]
  - NEUROPATHY PERIPHERAL [None]
